FAERS Safety Report 17267945 (Version 2)
Quarter: 2020Q1

REPORT INFORMATION
  Report Type: Spontaneous
  Country: GB (occurrence: GB)
  Receive Date: 20200114
  Receipt Date: 20200130
  Transmission Date: 20200409
  Serious: Yes (Death, Other)
  Sender: FDA-Public Use
  Company Number: GB-BAYER-2020-003936

PATIENT
  Age: 12 Year
  Sex: Female
  Weight: 31.1 kg

DRUGS (1)
  1. SORAFENIB (RAF KINASE INHIBITOR) [Suspect]
     Active Substance: SORAFENIB
     Indication: ACUTE MYELOID LEUKAEMIA
     Dosage: UNK
     Dates: end: 20191227

REACTIONS (7)
  - Product use in unapproved indication [None]
  - Acute myeloid leukaemia [Fatal]
  - Off label use [None]
  - Product use issue [None]
  - Blast cell count increased [Fatal]
  - White blood cell count increased [Fatal]
  - Thrombocytopenia [Fatal]
